FAERS Safety Report 9767550 (Version 1)
Quarter: 2013Q4

REPORT INFORMATION
  Report Type: Spontaneous
  Country: US (occurrence: US)
  Receive Date: 20131217
  Receipt Date: 20131217
  Transmission Date: 20140711
  Serious: No
  Sender: FDA-Public Use
  Company Number: US-EISAI INC-AP356-00313-SPO-US

PATIENT
  Age: 60 Year
  Sex: Female
  Weight: 83 kg

DRUGS (4)
  1. BELVIQ (LORCASERIN HYDROCHLORIDE) [Suspect]
     Indication: WEIGHT DECREASED
     Route: 048
     Dates: start: 20131203, end: 20131207
  2. VITAMIN D 3 [Concomitant]
     Indication: VITAMIN D DEFICIENCY
     Dates: start: 201312
  3. LEVOTHYROXINE [Concomitant]
     Indication: HYPOTHYROIDISM
     Dosage: 0.25 (UNITS NOT PROVIDED)
     Dates: start: 2003
  4. MULTIVITAMIN [Concomitant]
     Indication: PRODUCT USED FOR UNKNOWN INDICATION
     Dosage: UNKNOWN

REACTIONS (3)
  - Fatigue [Recovered/Resolved]
  - Depression [Recovered/Resolved]
  - Drug ineffective [Not Recovered/Not Resolved]
